FAERS Safety Report 6636439-3 (Version None)
Quarter: 2010Q1

REPORT INFORMATION
  Report Type: 
  Country: None (occurrence: None)
  Receive Date: 20100226
  Receipt Date: 20090805
  Transmission Date: 20100710
  Serious: Yes (Other)
  Sender: FDA-Public Use
  Company Number: WAES 0908USA01763

PATIENT
  Sex: Male

DRUGS (1)
  1. PRINIVIL [Suspect]
     Dosage: PO
     Route: 048

REACTIONS (1)
  - RENAL FAILURE ACUTE [None]
